FAERS Safety Report 18129547 (Version 1)
Quarter: 2020Q3

REPORT INFORMATION
  Report Type: Report from Study
  Country: US (occurrence: US)
  Receive Date: 20200810
  Receipt Date: 20200810
  Transmission Date: 20201103
  Serious: Yes (Hospitalization, Other)
  Sender: FDA-Public Use
  Company Number: US-AMGEN-USASL2020125734

PATIENT
  Age: 62 Year
  Sex: Male

DRUGS (1)
  1. REPATHA [Suspect]
     Active Substance: EVOLOCUMAB
     Indication: HYPERLIPIDAEMIA
     Dosage: 140 MILLIGRAM, Q2WK
     Route: 065

REACTIONS (4)
  - Suspected COVID-19 [Unknown]
  - Oropharyngeal pain [Unknown]
  - Influenza like illness [Unknown]
  - Respiratory disorder [Unknown]

NARRATIVE: CASE EVENT DATE: 2020
